FAERS Safety Report 9245788 (Version 2)
Quarter: 2013Q3

REPORT INFORMATION
  Report Type: Report from Study
  Country: JP (occurrence: JP)
  Receive Date: 20130422
  Receipt Date: 20130813
  Transmission Date: 20140515
  Serious: Yes (Hospitalization)
  Sender: FDA-Public Use
  Company Number: JP-ROCHE-1154463

PATIENT
  Age: 75 Year
  Sex: Male

DRUGS (10)
  1. RITUXIMAB [Suspect]
     Indication: B-CELL LYMPHOMA
     Route: 042
     Dates: start: 20120201, end: 20121001
  2. EXFORGE [Concomitant]
  3. LACTOBACILLUS BIFIDUS [Concomitant]
     Route: 065
     Dates: start: 200311
  4. ATENOLOL [Concomitant]
  5. TEPRENONE [Concomitant]
     Route: 065
     Dates: start: 200311
  6. FAMOTIDINE [Concomitant]
     Route: 065
     Dates: start: 200311
  7. MAGNESIUM OXIDE [Concomitant]
     Route: 065
     Dates: start: 2011
  8. INNOLET 30R [Concomitant]
  9. LEVOFLOXACIN [Concomitant]
     Route: 065
     Dates: start: 20120309
  10. ECOLICIN [Concomitant]
     Route: 065
     Dates: start: 20120309

REACTIONS (2)
  - Sepsis [Recovered/Resolved]
  - Hepatic neoplasm [Recovering/Resolving]
